FAERS Safety Report 5326447-7 (Version None)
Quarter: 2007Q2

REPORT INFORMATION
  Report Type: 
  Country: None (occurrence: None)
  Receive Date: 20070516
  Receipt Date: 20070506
  Transmission Date: 20071010
  Serious: Yes (Life-Threatening)
  Sender: FDA-Public Use
  Company Number: US-JNJFOC-20070400077

PATIENT
  Age: 21 Year
  Sex: Male

DRUGS (3)
  1. INVEGA [Suspect]
     Indication: SCHIZOPHRENIA
     Route: 048
  2. PROZAC [Suspect]
     Indication: DRUG USE FOR UNKNOWN INDICATION
  3. WELLBUTRIN [Concomitant]
     Indication: DEPRESSION

REACTIONS (3)
  - EJACULATION DISORDER [None]
  - INTENTIONAL OVERDOSE [None]
  - SUICIDE ATTEMPT [None]
